FAERS Safety Report 16348626 (Version 1)
Quarter: 2019Q2

REPORT INFORMATION
  Report Type: Spontaneous
  Country: CA (occurrence: CA)
  Receive Date: 20190523
  Receipt Date: 20190523
  Transmission Date: 20190711
  Serious: Yes (Life-Threatening, Other)
  Sender: FDA-Public Use
  Company Number: CA-TEVA-2019-CA-1051579

PATIENT
  Age: 79 Year
  Sex: Male

DRUGS (6)
  1. RABEPRAZOLE [Concomitant]
     Active Substance: RABEPRAZOLE
  2. ZOPICLONE [Concomitant]
     Active Substance: ZOPICLONE
  3. TESTOSTERONE. [Concomitant]
     Active Substance: TESTOSTERONE
  4. OXAZEPAM. [Concomitant]
     Active Substance: OXAZEPAM
  5. ZOLPIDEM [Concomitant]
     Active Substance: ZOLPIDEM\ZOLPIDEM TARTRATE
  6. SILDENAFIL CITRATE. [Suspect]
     Active Substance: SILDENAFIL CITRATE
     Indication: ERECTILE DYSFUNCTION
     Route: 048

REACTIONS (1)
  - Basal ganglia haemorrhage [Unknown]
